FAERS Safety Report 16983418 (Version 3)
Quarter: 2020Q1

REPORT INFORMATION
  Report Type: Report from Study
  Country: US (occurrence: US)
  Receive Date: 20191101
  Receipt Date: 20200312
  Transmission Date: 20200409
  Serious: No
  Sender: FDA-Public Use
  Company Number: US-JNJFOC-20191038255

PATIENT
  Age: 69 Year
  Sex: Female
  Weight: 50 kg

DRUGS (36)
  1. SIMPONI ARIA [Suspect]
     Active Substance: GOLIMUMAB
     Dosage: 2MG/KG
     Route: 042
     Dates: start: 20161111, end: 20161111
  2. SIMPONI ARIA [Suspect]
     Active Substance: GOLIMUMAB
     Dosage: 2MG/KG
     Route: 042
     Dates: start: 20180216, end: 20180216
  3. SIMPONI ARIA [Suspect]
     Active Substance: GOLIMUMAB
     Dosage: 2MG/KG
     Route: 042
     Dates: start: 20190426, end: 20190426
  4. LIDODERM [Concomitant]
     Active Substance: LIDOCAINE
     Indication: FIBROMYALGIA
     Route: 062
     Dates: start: 2010
  5. PERCOCET [Concomitant]
     Active Substance: ACETAMINOPHEN\OXYCODONE HYDROCHLORIDE
     Indication: RHEUMATOID ARTHRITIS
     Dosage: 5-325 MILLIGRAM
     Route: 048
     Dates: start: 20130225
  6. HYDROCHLOROTHIAZIDE. [Concomitant]
     Active Substance: HYDROCHLOROTHIAZIDE
     Indication: HYPERTENSION
     Route: 048
     Dates: start: 20080707, end: 20170501
  7. SIMPONI ARIA [Suspect]
     Active Substance: GOLIMUMAB
     Dosage: 2MG/KG
     Route: 042
     Dates: start: 20180330, end: 20180330
  8. ZANAFLEX [Concomitant]
     Active Substance: TIZANIDINE HYDROCHLORIDE
     Indication: FIBROMYALGIA
     Route: 048
     Dates: start: 20150821
  9. SIMPONI ARIA [Suspect]
     Active Substance: GOLIMUMAB
     Dosage: 2MG/KG
     Route: 042
     Dates: start: 20170428, end: 20170428
  10. VITAMIN D                          /00107901/ [Concomitant]
     Active Substance: ERGOCALCIFEROL
     Route: 048
     Dates: start: 2000
  11. PROLIA [Concomitant]
     Active Substance: DENOSUMAB
     Indication: OSTEOPOROSIS
     Route: 058
     Dates: start: 20150605
  12. SIMPONI ARIA [Suspect]
     Active Substance: GOLIMUMAB
     Dosage: 2MG/KG
     Route: 042
     Dates: start: 20190104, end: 20190104
  13. PREDNISONE. [Concomitant]
     Active Substance: PREDNISONE
     Indication: RHEUMATOID ARTHRITIS
     Route: 048
     Dates: start: 20170915, end: 20170922
  14. PREDNISONE. [Concomitant]
     Active Substance: PREDNISONE
     Route: 048
     Dates: start: 20170923, end: 20171007
  15. FLUOROURACIL. [Concomitant]
     Active Substance: FLUOROURACIL
     Indication: PROPHYLAXIS
     Route: 061
     Dates: start: 20170303
  16. NEURONTIN [Concomitant]
     Active Substance: GABAPENTIN
     Indication: FIBROMYALGIA
     Route: 048
     Dates: start: 20160916
  17. TRIAMTERENE. [Concomitant]
     Active Substance: TRIAMTERENE
     Indication: HYPERTENSION
     Route: 048
     Dates: start: 20080707
  18. SIMPONI ARIA [Suspect]
     Active Substance: GOLIMUMAB
     Indication: RHEUMATOID ARTHRITIS
     Dosage: 2MG/KG
     Route: 042
     Dates: start: 20161014, end: 20161014
  19. SIMPONI ARIA [Suspect]
     Active Substance: GOLIMUMAB
     Dosage: 2MG/KG
     Route: 042
     Dates: start: 20170818, end: 20170818
  20. SIMPONI ARIA [Suspect]
     Active Substance: GOLIMUMAB
     Dosage: 2MG/KG
     Route: 042
     Dates: start: 20180914, end: 20180914
  21. SIMPONI ARIA [Suspect]
     Active Substance: GOLIMUMAB
     Dosage: 2MG/KG
     Route: 042
     Dates: start: 20190301, end: 20190301
  22. SIMPONI ARIA [Suspect]
     Active Substance: GOLIMUMAB
     Dosage: 2MG/KG
     Route: 042
     Dates: start: 20190621, end: 20190621
  23. CALCIUM W/COLECALCIFEROL [Concomitant]
     Active Substance: CALCIUM\CHOLECALCIFEROL
     Route: 048
     Dates: start: 2000
  24. LOVASTATIN. [Concomitant]
     Active Substance: LOVASTATIN
     Indication: BLOOD CHOLESTEROL INCREASED
     Route: 048
     Dates: start: 2006
  25. WELLBUTRIN [Concomitant]
     Active Substance: BUPROPION HYDROCHLORIDE
     Indication: FIBROMYALGIA
     Route: 048
     Dates: start: 20150824
  26. HYDROCHLOROTHIAZIDE. [Concomitant]
     Active Substance: HYDROCHLOROTHIAZIDE
     Route: 048
     Dates: start: 20170502
  27. PREDNISONE. [Concomitant]
     Active Substance: PREDNISONE
     Route: 048
     Dates: start: 20171008
  28. PREDNISONE. [Concomitant]
     Active Substance: PREDNISONE
     Route: 048
     Dates: start: 20160108
  29. SIMPONI ARIA [Suspect]
     Active Substance: GOLIMUMAB
     Dosage: 2MG/KG
     Route: 042
     Dates: start: 20170106, end: 20170106
  30. SIMPONI ARIA [Suspect]
     Active Substance: GOLIMUMAB
     Dosage: 2MG/KG
     Route: 042
     Dates: start: 20170303, end: 20170303
  31. SIMPONI ARIA [Suspect]
     Active Substance: GOLIMUMAB
     Dosage: 2MG/KG
     Route: 042
     Dates: start: 20170623, end: 20170623
  32. SIMPONI ARIA [Suspect]
     Active Substance: GOLIMUMAB
     Dosage: 2MG/KG
     Route: 042
     Dates: start: 20171208, end: 20171208
  33. SIMPONI ARIA [Suspect]
     Active Substance: GOLIMUMAB
     Dosage: 2MG/KG
     Route: 042
     Dates: start: 20181109, end: 20181109
  34. SIMPONI ARIA [Suspect]
     Active Substance: GOLIMUMAB
     Dosage: 2MG/KG
     Route: 042
     Dates: start: 20171013, end: 20171013
  35. SIMPONI ARIA [Suspect]
     Active Substance: GOLIMUMAB
     Dosage: 2MG/KG
     Route: 042
     Dates: start: 20180719, end: 20180719
  36. ARAVA [Concomitant]
     Active Substance: LEFLUNOMIDE
     Indication: RHEUMATOID ARTHRITIS
     Route: 048
     Dates: start: 20160915

REACTIONS (1)
  - Malignant melanoma [Recovered/Resolved]

NARRATIVE: CASE EVENT DATE: 20171128
